FAERS Safety Report 18807516 (Version 1)
Quarter: 2021Q1

REPORT INFORMATION
  Report Type: Spontaneous
  Country: US (occurrence: US)
  Receive Date: 20210129
  Receipt Date: 20210129
  Transmission Date: 20210419
  Serious: Yes (Death, Hospitalization)
  Sender: FDA-Public Use
  Company Number: None

PATIENT
  Age: 20 Year
  Sex: Male
  Weight: 139 kg

DRUGS (6)
  1. PREDNISOLONE. [Suspect]
     Active Substance: PREDNISOLONE
     Dates: end: 20210121
  2. DAUNORUBICIN [Suspect]
     Active Substance: DAUNORUBICIN
     Dates: end: 20210115
  3. VINCRISTINE SULFATE. [Suspect]
     Active Substance: VINCRISTINE SULFATE
     Dates: end: 20210115
  4. METHOTREXATE. [Suspect]
     Active Substance: METHOTREXATE
     Dates: end: 20210115
  5. CYTARABINE. [Suspect]
     Active Substance: CYTARABINE
     Dates: end: 20210107
  6. ONCASPAR [Suspect]
     Active Substance: PEGASPARGASE
     Dates: end: 20210111

REACTIONS (12)
  - Abdominal pain [None]
  - Cardiac arrest [None]
  - Ventricular tachycardia [None]
  - Heart rate increased [None]
  - Blood culture positive [None]
  - Paralysis [None]
  - Pancytopenia [None]
  - Blood pressure decreased [None]
  - Unresponsive to stimuli [None]
  - Liver function test increased [None]
  - Procalcitonin increased [None]
  - Haemodynamic instability [None]

NARRATIVE: CASE EVENT DATE: 20210122
